FAERS Safety Report 7647361-8 (Version None)
Quarter: 2011Q3

REPORT INFORMATION
  Report Type: 
  Country: None (occurrence: None)
  Receive Date: 20110729
  Receipt Date: 20110729
  Transmission Date: 20111222
  Serious: Yes (Hospitalization)
  Sender: FDA-Public Use
  Company Number: None

PATIENT
  Sex: Female
  Weight: 67 kg

DRUGS (4)
  1. TAXOL [Suspect]
     Dosage: 1704 MG
     Dates: end: 20110609
  2. CYCLOPHOSPHAMIDE [Suspect]
     Dosage: 3198 MG
     Dates: end: 20110714
  3. DOXORUBICIN HYDROCHLORIDE [Suspect]
     Dosage: 319 MG
     Dates: end: 20110714
  4. MULTI-VITAMIN [Concomitant]

REACTIONS (4)
  - WHITE BLOOD CELL COUNT DECREASED [None]
  - PYREXIA [None]
  - FEBRILE NEUTROPENIA [None]
  - CATHETER SITE PRURITUS [None]
